FAERS Safety Report 15005368 (Version 1)
Quarter: 2018Q2

REPORT INFORMATION
  Report Type: Spontaneous
  Country: CH (occurrence: CH)
  Receive Date: 20180613
  Receipt Date: 20180613
  Transmission Date: 20180711
  Serious: Yes (Other)
  Sender: FDA-Public Use
  Company Number: CH-LPDUSPRD-20181028

PATIENT
  Age: 47 Year
  Sex: Female

DRUGS (1)
  1. FERINJECT [Suspect]
     Active Substance: FERRIC CARBOXYMALTOSE
     Dosage: (1 DOSAGE FORMS)
     Route: 041
     Dates: start: 20180508, end: 20180508

REACTIONS (6)
  - Asthenia [Recovering/Resolving]
  - Infusion site swelling [Recovered/Resolved]
  - Pigmentation disorder [Not Recovered/Not Resolved]
  - Erythema [Recovered/Resolved]
  - Nausea [Recovered/Resolved]
  - Headache [Recovered/Resolved]

NARRATIVE: CASE EVENT DATE: 20180508
